FAERS Safety Report 9444567 (Version 1)
Quarter: 2013Q3

REPORT INFORMATION
  Report Type: Spontaneous
  Country: US (occurrence: US)
  Receive Date: 20130807
  Receipt Date: 20130807
  Transmission Date: 20140515
  Serious: No
  Sender: FDA-Public Use
  Company Number: US-PFIZER INC-2013226658

PATIENT
  Age: 59 Year
  Sex: Female
  Weight: 49.89 kg

DRUGS (4)
  1. XELJANZ [Suspect]
     Indication: RHEUMATOID ARTHRITIS
     Dosage: 5 MG, 2X/DAY
     Dates: start: 20130622
  2. FIORICET [Suspect]
     Indication: HEADACHE
     Dosage: UNK
     Dates: start: 20130625
  3. PERCOCET [Suspect]
     Indication: HEADACHE
     Dosage: UNK
     Dates: start: 20130625
  4. ATENOLOL [Concomitant]
     Indication: HYPERTENSION
     Dosage: UNK

REACTIONS (3)
  - Headache [Not Recovered/Not Resolved]
  - Drug ineffective [Unknown]
  - Somnolence [Unknown]
